FAERS Safety Report 21376654 (Version 1)
Quarter: 2022Q3

REPORT INFORMATION
  Report Type: Spontaneous
  Country: US (occurrence: None)
  Receive Date: 20220924
  Receipt Date: 20220924
  Transmission Date: 20221027
  Serious: Yes (Disabling)
  Sender: FDA-Public Use
  Company Number: None

PATIENT
  Age: 68 Year
  Sex: Female
  Weight: 63 kg

DRUGS (12)
  1. AVASTIN [Suspect]
     Active Substance: BEVACIZUMAB
     Indication: Age-related macular degeneration
     Dosage: 1 INJECTION MONTHLY OPHTHALMIC ?
     Route: 047
     Dates: start: 20220207, end: 20220615
  2. OMEGA 3 [Concomitant]
     Active Substance: CAPSAICIN
  3. A?a? [Concomitant]
  4. HERBALS\TURMERIC [Concomitant]
     Active Substance: HERBALS\TURMERIC
  5. BEETROOT [Concomitant]
  6. MINERALS\VITAMINS [Concomitant]
     Active Substance: MINERALS\VITAMINS
  7. BONE CARE [Concomitant]
     Active Substance: ATRACTYLODES LANCEA ROOT
  8. ROYAL JELLY [Concomitant]
     Active Substance: ROYAL JELLY
  9. Uniquinol [Concomitant]
  10. Mega B stress [Concomitant]
  11. DIETARY SUPPLEMENT [Concomitant]
     Active Substance: DIETARY SUPPLEMENT
  12. Spiralina [Concomitant]

REACTIONS (5)
  - Nausea [None]
  - Asthenia [None]
  - Diarrhoea [None]
  - Vertigo [None]
  - Blood pressure increased [None]

NARRATIVE: CASE EVENT DATE: 20220207
